FAERS Safety Report 25710677 (Version 2)
Quarter: 2025Q3

REPORT INFORMATION
  Report Type: Spontaneous
  Country: US (occurrence: US)
  Receive Date: 20250821
  Receipt Date: 20250909
  Transmission Date: 20251021
  Serious: Yes (Hospitalization)
  Sender: TEVA
  Company Number: US-TEVA-VS-3362732

PATIENT
  Age: 57 Year
  Sex: Male

DRUGS (2)
  1. METHYLPREDNISOLONE [Suspect]
     Active Substance: METHYLPREDNISOLONE
     Indication: Tubulointerstitial nephritis
     Route: 065
  2. RITUXIMAB [Concomitant]
     Active Substance: RITUXIMAB
     Indication: Product used for unknown indication
     Route: 065

REACTIONS (11)
  - Pneumothorax [Unknown]
  - Hyponatraemia [Unknown]
  - Procalcitonin increased [Unknown]
  - Legionella infection [Unknown]
  - Dyspnoea [Unknown]
  - Lung opacity [Unknown]
  - Renal impairment [Unknown]
  - Bandaemia [Unknown]
  - Leukocytosis [Unknown]
  - Bronchopleural fistula [Unknown]
  - Lung consolidation [Unknown]
